FAERS Safety Report 6743298-7 (Version None)
Quarter: 2010Q2

REPORT INFORMATION
  Report Type: 
  Country: None (occurrence: None)
  Receive Date: 20100527
  Receipt Date: 20100525
  Transmission Date: 20101027
  Serious: Yes (Life-Threatening, Hospitalization)
  Sender: FDA-Public Use
  Company Number: FR-JNJFOC-20100403437

PATIENT
  Sex: Male

DRUGS (6)
  1. REMINYL [Suspect]
     Indication: DEMENTIA ALZHEIMER'S TYPE
     Route: 048
     Dates: start: 20040101
  2. DEROXAT [Concomitant]
     Route: 048
  3. NEURONTIN [Concomitant]
     Indication: NEURALGIA
     Route: 048
  4. ALDACTAZINE [Concomitant]
     Indication: HYPERTENSION
     Route: 048
  5. SERESTA [Concomitant]
     Route: 048
  6. NEXIUM [Concomitant]
     Route: 048

REACTIONS (5)
  - CONVULSION [None]
  - FALL [None]
  - LOSS OF CONSCIOUSNESS [None]
  - MALAISE [None]
  - SINOATRIAL BLOCK [None]
